FAERS Safety Report 13413328 (Version 2)
Quarter: 2017Q4

REPORT INFORMATION
  Report Type: Spontaneous
  Country: US (occurrence: US)
  Receive Date: 20170406
  Receipt Date: 20171123
  Transmission Date: 20180320
  Serious: No
  Sender: FDA-Public Use
  Company Number: US-JNJFOC-20170316556

PATIENT
  Age: 21 Year
  Sex: Male

DRUGS (12)
  1. RISPERDAL [Suspect]
     Active Substance: RISPERIDONE
     Indication: PRADER-WILLI SYNDROME
     Route: 048
     Dates: start: 20091207, end: 20131202
  2. RISPERIDONE. [Suspect]
     Active Substance: RISPERIDONE
     Indication: AFFECTIVE DISORDER
     Dosage: VARYING DOSES OF 0.5 MG AND 1 MG
     Route: 048
     Dates: start: 20091207, end: 20110325
  3. RISPERIDONE. [Suspect]
     Active Substance: RISPERIDONE
     Indication: PRADER-WILLI SYNDROME
     Dosage: VARYING DOSES OF 0.5 MG AND 1 MG
     Route: 048
     Dates: start: 20091207, end: 20110325
  4. RISPERIDONE. [Suspect]
     Active Substance: RISPERIDONE
     Indication: PRADER-WILLI SYNDROME
     Route: 048
     Dates: start: 20110721, end: 20131202
  5. INVEGA [Suspect]
     Active Substance: PALIPERIDONE
     Indication: AFFECTIVE DISORDER
     Route: 048
     Dates: start: 20090521
  6. RISPERIDONE. [Suspect]
     Active Substance: RISPERIDONE
     Indication: PRADER-WILLI SYNDROME
     Route: 048
     Dates: start: 20110513, end: 20110625
  7. RISPERDAL [Suspect]
     Active Substance: RISPERIDONE
     Indication: PRADER-WILLI SYNDROME
     Route: 048
     Dates: start: 20070306
  8. RISPERDAL [Suspect]
     Active Substance: RISPERIDONE
     Indication: AFFECTIVE DISORDER
     Route: 048
     Dates: start: 20091207, end: 20131202
  9. INVEGA [Suspect]
     Active Substance: PALIPERIDONE
     Indication: PRADER-WILLI SYNDROME
     Route: 048
     Dates: start: 20090521
  10. RISPERDAL [Suspect]
     Active Substance: RISPERIDONE
     Indication: AFFECTIVE DISORDER
     Route: 048
     Dates: start: 20070306
  11. RISPERIDONE. [Suspect]
     Active Substance: RISPERIDONE
     Indication: AFFECTIVE DISORDER
     Route: 048
     Dates: start: 20110513, end: 20110625
  12. RISPERIDONE. [Suspect]
     Active Substance: RISPERIDONE
     Indication: AFFECTIVE DISORDER
     Route: 048
     Dates: start: 20110721, end: 20131202

REACTIONS (4)
  - Gynaecomastia [Unknown]
  - Off label use [Unknown]
  - Product use in unapproved indication [Unknown]
  - Emotional disorder [Unknown]

NARRATIVE: CASE EVENT DATE: 20070306
